FAERS Safety Report 19091733 (Version 1)
Quarter: 2021Q2

REPORT INFORMATION
  Report Type: Spontaneous
  Country: GB (occurrence: GB)
  Receive Date: 20210405
  Receipt Date: 20210405
  Transmission Date: 20210717
  Serious: Yes (Life-Threatening, Hospitalization, Other)
  Sender: FDA-Public Use
  Company Number: GB-MACLEODS PHARMACEUTICALS US LTD-MAC2021030673

PATIENT

DRUGS (4)
  1. QUETIAPINE 25 MG [Suspect]
     Active Substance: QUETIAPINE
     Indication: PARKINSON^S DISEASE
     Dosage: 25 MILLIGRAM, QD
     Route: 065
  2. RIVASTIGMINE. [Concomitant]
     Active Substance: RIVASTIGMINE
     Indication: PARKINSON^S DISEASE
     Dosage: 1.5 MILLIGRAM, BID (12 HOUR)
     Route: 065
  3. CO?CARELDOPA 25/100 MG [Suspect]
     Active Substance: CARBIDOPA\LEVODOPA
     Indication: PARKINSON^S DISEASE
  4. CO?CARELDOPA 25/100 MG [Suspect]
     Active Substance: CARBIDOPA\LEVODOPA
     Indication: DEMENTIA
     Dosage: 1 DOSAGE FORM, TID (8 HOUR)
     Route: 065

REACTIONS (4)
  - Withdrawal syndrome [Unknown]
  - Unresponsive to stimuli [Unknown]
  - Neuroleptic malignant syndrome [Unknown]
  - Acute kidney injury [Unknown]
